FAERS Safety Report 4374114-9 (Version None)
Quarter: 2004Q2

REPORT INFORMATION
  Report Type: 
  Country: None (occurrence: None)
  Receive Date: 20040603
  Receipt Date: 20040524
  Transmission Date: 20050107
  Serious: No
  Sender: FDA-Public Use
  Company Number: 04P-150-0250799-00

PATIENT
  Age: 52 Year
  Sex: Female
  Weight: 97 kg

DRUGS (5)
  1. MERIDIA [Suspect]
     Indication: OVERWEIGHT
     Dosage: SEE IMAGE
     Route: 048
     Dates: start: 20030201, end: 20030101
  2. MERIDIA [Suspect]
     Indication: OVERWEIGHT
     Dosage: SEE IMAGE
     Route: 048
     Dates: start: 20030101, end: 20040201
  3. LEVOTHYROXINE SODIUM [Concomitant]
  4. NAPROXEN [Concomitant]
  5. LANSOPRAZOLE [Concomitant]

REACTIONS (2)
  - EMBOLISM [None]
  - PAIN IN EXTREMITY [None]
